FAERS Safety Report 9782381 (Version 1)
Quarter: 2013Q4

REPORT INFORMATION
  Report Type: Report from Study
  Country: BR (occurrence: BR)
  Receive Date: 20131226
  Receipt Date: 20131226
  Transmission Date: 20140711
  Serious: Yes (Disabling, Other)
  Sender: FDA-Public Use
  Company Number: PHHY2013BR149835

PATIENT
  Age: 76 Year
  Sex: Female
  Weight: 92 kg

DRUGS (3)
  1. SANDOSTATIN LAR (PATIENT BASIS) [Suspect]
     Indication: ACROMEGALY
     Dosage: 2 DF (20 MG), EVERY 28 DAYS
     Route: 030
     Dates: start: 2000
  2. ENALAPRIL [Concomitant]
     Indication: HYPERTENSION
     Dosage: 1 DF, DAILY
     Route: 048
  3. CABERGOLINE [Concomitant]
     Indication: BRAIN MASS
     Dosage: 6 DF, WEEKLY
     Route: 048
     Dates: start: 2000

REACTIONS (2)
  - Meningioma benign [Recovering/Resolving]
  - Deafness unilateral [Not Recovered/Not Resolved]
